FAERS Safety Report 7424033-6 (Version None)
Quarter: 2011Q2

REPORT INFORMATION
  Report Type: 
  Country: None (occurrence: None)
  Receive Date: 20110419
  Receipt Date: 20081108
  Transmission Date: 20111010
  Serious: Yes (Death, Other)
  Sender: FDA-Public Use
  Company Number: US-BAYER-200838941NA

PATIENT
  Age: 77 Year
  Sex: Female
  Weight: 61.224 kg

DRUGS (16)
  1. NORVASC [Concomitant]
     Dosage: 5 MG, QD
     Route: 048
  2. NIPRIDE [Concomitant]
     Route: 041
  3. NITROGLYCERIN [Concomitant]
     Dosage: 1 INCH/EVERY 6 HOURS AS NEEDED
  4. PROTONIX [Concomitant]
     Dosage: 40 MG, UNK
     Route: 048
  5. MIDAZOLAM [Concomitant]
     Dosage: 10 MG, UNK
  6. ACETAMINOPHEN [Concomitant]
     Dosage: 650 MG, Q4HR
     Route: 048
  7. COZAAR [Concomitant]
     Dosage: 100 MG, QD
     Route: 048
  8. PROPOFOL [Concomitant]
     Dosage: 150 UNITES UNSPECIFIED
  9. PAVULON [Concomitant]
  10. POTASSIUM CHLORIDE [Concomitant]
     Dosage: 20 MEQ, UNK
  11. TRASYLOL [Suspect]
     Indication: CORONARY ARTERY BYPASS
     Dosage: 200 ML, LOADING DOSE
     Route: 042
     Dates: start: 20050802
  12. RED BLOOD CELLS [Concomitant]
     Dosage: 2 U, UNK
     Route: 042
     Dates: start: 20050802
  13. ANCEF [Concomitant]
  14. FENTANYL [Concomitant]
     Dosage: 40 ML, UNK
  15. MACROBID [Concomitant]
     Dosage: 100 MG, BID
     Route: 048
  16. NITROSTAT [Concomitant]
     Indication: CHEST PAIN

REACTIONS (11)
  - DEATH [None]
  - PAIN [None]
  - ANHEDONIA [None]
  - UNEVALUABLE EVENT [None]
  - MULTI-ORGAN FAILURE [None]
  - RENAL FAILURE [None]
  - STRESS [None]
  - FEAR [None]
  - EMOTIONAL DISTRESS [None]
  - ANXIETY [None]
  - INJURY [None]
